FAERS Safety Report 9511492 (Version 2)
Quarter: 2013Q3

REPORT INFORMATION
  Report Type: Spontaneous
  Country: US (occurrence: US)
  Receive Date: 20130910
  Receipt Date: 20130910
  Transmission Date: 20140515
  Serious: Yes (Hospitalization, Other)
  Sender: FDA-Public Use
  Company Number: US-RANBAXY-2011US-50263

PATIENT
  Age: 58 Year
  Sex: Female

DRUGS (3)
  1. INSULIN [Suspect]
     Indication: CARDIOGENIC SHOCK
     Dosage: 80 IU
     Route: 042
  2. INSULIN [Suspect]
     Dosage: 82-84 IU/HOUR
     Route: 042
  3. VERAPAMIL [Suspect]
     Indication: PRODUCT USED FOR UNKNOWN INDICATION
     Dosage: UNK
     Route: 048

REACTIONS (3)
  - Overdose [Recovered/Resolved]
  - Cardiogenic shock [Recovered/Resolved]
  - Hypokalaemia [Recovered/Resolved]
